FAERS Safety Report 4608903-X (Version None)
Quarter: 2005Q1

REPORT INFORMATION
  Report Type: 
  Country: None (occurrence: None)
  Receive Date: 20050309
  Receipt Date: 20050225
  Transmission Date: 20050727
  Serious: Yes (Disabling)
  Sender: FDA-Public Use
  Company Number: 2005028496

PATIENT
  Age: 52 Year
  Sex: Female

DRUGS (8)
  1. NEURONTIN [Suspect]
     Indication: BONE PAIN
     Dosage: 600 MG (300 MG, 2 IN 1 D), ORAL
     Route: 048
     Dates: start: 20040101, end: 20050101
  2. NEURONTIN [Suspect]
     Indication: CENTRAL NERVOUS SYSTEM LESION
     Dosage: 600 MG (300 MG, 2 IN 1 D), ORAL
     Route: 048
     Dates: start: 20040101, end: 20050101
  3. CARBAMAZEPINE [Concomitant]
  4. BACLOFEN [Concomitant]
  5. CALCIUM WITH VITAMIN D (CALCIUM PHOSPHATE, CALCIUM SODIUM LACTATE, ERG [Concomitant]
  6. THIAMINE HCL [Concomitant]
  7. PHENOBARBITAL SODIUM 100MG CAP [Concomitant]
  8. PHENYTOIN [Concomitant]

REACTIONS (16)
  - ASTHENIA [None]
  - DIPLOPIA [None]
  - DIZZINESS [None]
  - DRUG WITHDRAWAL SYNDROME [None]
  - FEELING ABNORMAL [None]
  - GASTRIC DILATATION [None]
  - HEADACHE [None]
  - HEARING IMPAIRED [None]
  - MYALGIA [None]
  - NAUSEA [None]
  - NERVOUSNESS [None]
  - SOMNOLENCE [None]
  - TREMOR [None]
  - VISUAL DISTURBANCE [None]
  - VOMITING [None]
  - WEIGHT INCREASED [None]
